FAERS Safety Report 18780172 (Version 1)
Quarter: 2021Q1

REPORT INFORMATION
  Report Type: Spontaneous
  Country: US (occurrence: US)
  Receive Date: 20210122
  Receipt Date: 20210122
  Transmission Date: 20210419
  Serious: Yes (Other)
  Sender: FDA-Public Use
  Company Number: None

PATIENT
  Age: 60 Year
  Sex: Female
  Weight: 125.2 kg

DRUGS (7)
  1. BAMLANIVIMAB. [Suspect]
     Active Substance: BAMLANIVIMAB
     Indication: COVID-19
     Dates: start: 20210115, end: 20210115
  2. VITAMIN D 5000 UNIT CAPSULE [Concomitant]
  3. MALARONE 250?100 MG TABLET [Concomitant]
  4. CYCLOBENZAPRINE 10 MG [Concomitant]
     Active Substance: CYCLOBENZAPRINE
  5. CHELATED ZINC 100 MG [Concomitant]
  6. IBUPROFEN 600 MG [Concomitant]
     Active Substance: IBUPROFEN
  7. ASCORBIC ACID 500 MG [Concomitant]

REACTIONS (2)
  - Pain in extremity [None]
  - Musculoskeletal pain [None]

NARRATIVE: CASE EVENT DATE: 20210115
